FAERS Safety Report 5652979-8 (Version None)
Quarter: 2008Q1

REPORT INFORMATION
  Report Type: 
  Country: None (occurrence: None)
  Receive Date: 20080306
  Receipt Date: 20080303
  Transmission Date: 20080703
  Serious: Yes (Other)
  Sender: FDA-Public Use
  Company Number: PHEH2008US00539

PATIENT
  Age: 60 Year
  Sex: Male

DRUGS (9)
  1. BENICAR [Concomitant]
     Indication: HYPERTENSION
     Dosage: 5 MG, QD
  2. PLAVIX [Concomitant]
     Dosage: 75 MG, QD
  3. ZOMETA [Suspect]
     Indication: MULTIPLE MYELOMA
     Dosage: 4MG, Q3MO
     Dates: start: 20011201, end: 20071001
  4. LIPITOR [Concomitant]
     Indication: BLOOD CHOLESTEROL INCREASED
     Dosage: 10 MG, QD
  5. PROTONIX [Concomitant]
  6. ASPIRIN [Concomitant]
  7. EPOGEN [Concomitant]
  8. VITAMIN CAP [Concomitant]
  9. LEXAPRO [Concomitant]
     Dosage: 20 MG, QD

REACTIONS (3)
  - MUSCULOSKELETAL DISCOMFORT [None]
  - OSTEONECROSIS [None]
  - SURGERY [None]
